FAERS Safety Report 8542511-3 (Version None)
Quarter: 2012Q3

REPORT INFORMATION
  Report Type: 
  Country: None (occurrence: None)
  Receive Date: 20120726
  Receipt Date: 20110803
  Transmission Date: 20120928
  Serious: Yes (Other)
  Sender: FDA-Public Use
  Company Number: US-ASTRAZENECA-2011SE46345

PATIENT
  Age: 18 Year
  Sex: Male

DRUGS (3)
  1. SEROQUEL [Suspect]
     Route: 048
  2. SEROQUEL [Suspect]
     Route: 048
  3. DIAZEPAM [Concomitant]
     Dosage: AT NIGHT

REACTIONS (5)
  - CONVULSION [None]
  - HYPOKINESIA [None]
  - HALLUCINATION [None]
  - APHASIA [None]
  - TREMOR [None]
